FAERS Safety Report 9280170 (Version 1)
Quarter: 2013Q2

REPORT INFORMATION
  Report Type: Spontaneous
  Country: US (occurrence: None)
  Receive Date: 20130507
  Receipt Date: 20130507
  Transmission Date: 20140414
  Serious: Yes (Hospitalization)
  Sender: FDA-Public Use
  Company Number: None

PATIENT
  Age: 56 Year
  Sex: Female
  Weight: 58.97 kg

DRUGS (1)
  1. DEPOMEDROL [Suspect]
     Indication: DERMATITIS CONTACT
     Route: 030
     Dates: start: 20120526

REACTIONS (3)
  - Injection site abscess [None]
  - Scar pain [None]
  - Purulence [None]
